FAERS Safety Report 9555651 (Version 3)
Quarter: 2013Q4

REPORT INFORMATION
  Report Type: Spontaneous
  Country: US (occurrence: US)
  Receive Date: 20130926
  Receipt Date: 20131031
  Transmission Date: 20140711
  Serious: Yes (Hospitalization, Other)
  Sender: FDA-Public Use
  Company Number: PHEH2013US019970

PATIENT
  Age: 54 Year
  Sex: Female

DRUGS (24)
  1. GILENYA [Suspect]
     Indication: MULTIPLE SCLEROSIS
     Dosage: 0.5 MG, QD
     Route: 048
  2. VALIUM [Concomitant]
     Dosage: 1 DF, BID
     Route: 048
  3. NEXUM [Concomitant]
     Dosage: 1 DF, BID
     Route: 048
  4. FLEXERIL [Concomitant]
     Dosage: 1 DF, TID
     Route: 048
  5. REQUIP [Concomitant]
     Dosage: 2 DF, QD
     Route: 048
  6. REMERON [Concomitant]
     Dosage: 1 DF, QD
     Route: 048
  7. CYMBALTA [Concomitant]
     Dosage: 1 DF, QD
     Route: 048
  8. STOOL SOFTENER [Concomitant]
     Route: 048
  9. OXYGEN [Concomitant]
     Route: 045
  10. PHILLIPS COLON HEALTH [Concomitant]
     Route: 048
  11. QUADRAPAX [Concomitant]
     Dosage: 1 DF, Q4H
     Route: 048
  12. MECLIZINE [Concomitant]
     Dosage: 4 DF, BID
     Route: 048
  13. PRINIVIL [Concomitant]
     Dosage: 5 MG, QD
     Route: 048
  14. VITAMIN D [Concomitant]
     Route: 048
  15. VITAMIN D2 [Concomitant]
     Route: 048
  16. VENTOLIN HFA [Concomitant]
  17. POLYCARBOPHIL CALCIUM [Concomitant]
     Route: 048
  18. TEGRETOL [Concomitant]
     Dosage: 3 DF, BID
     Route: 048
  19. MULTIVITAMIN [Concomitant]
     Dosage: 1 DF, QD
     Route: 048
  20. FIBERCON [Concomitant]
     Dosage: 3 DF, BID
     Route: 048
  21. PROTONIX [Concomitant]
     Dosage: 1 DF, QD
     Route: 048
  22. PANTOPRAZOLE [Concomitant]
  23. MIRALAX [Concomitant]
  24. PROTON PUMP INHIBITORS [Concomitant]
     Indication: GASTROOESOPHAGEAL REFLUX DISEASE

REACTIONS (31)
  - Pancreatitis [Recovering/Resolving]
  - Lipase increased [Recovered/Resolved]
  - Abdominal tenderness [Recovered/Resolved]
  - Decreased appetite [Recovered/Resolved]
  - Abdominal pain upper [Recovered/Resolved]
  - Weight decreased [Unknown]
  - Amylase increased [Recovered/Resolved]
  - Gallbladder polyp [Unknown]
  - Endoscopic ultrasound abnormal [Unknown]
  - Mental impairment [Unknown]
  - Pollakiuria [Unknown]
  - Temperature intolerance [Unknown]
  - Ataxia [Unknown]
  - Neck pain [Recovered/Resolved]
  - Insomnia [Unknown]
  - Costochondritis [Unknown]
  - Dysphagia [Not Recovered/Not Resolved]
  - Hypoaesthesia [Unknown]
  - Chest pain [Not Recovered/Not Resolved]
  - Mobility decreased [Unknown]
  - Musculoskeletal discomfort [Unknown]
  - Muscular weakness [Unknown]
  - Malaise [Unknown]
  - Anxiety [Unknown]
  - Gait disturbance [Not Recovered/Not Resolved]
  - Cerebellar syndrome [Unknown]
  - Depressive symptom [Unknown]
  - Dizziness [Unknown]
  - Back pain [Unknown]
  - Dyspnoea [Unknown]
  - Asthenia [Not Recovered/Not Resolved]
